FAERS Safety Report 7038030-6 (Version None)
Quarter: 2010Q4

REPORT INFORMATION
  Report Type: 
  Country: None (occurrence: None)
  Receive Date: 20101011
  Receipt Date: 20090408
  Transmission Date: 20110411
  Serious: Yes (Other)
  Sender: FDA-Public Use
  Company Number: PHHY2009US66437

PATIENT
  Sex: Male

DRUGS (1)
  1. EXJADE [Suspect]
     Dosage: 1000 MG AM, 500 MG PM
     Route: 048

REACTIONS (3)
  - ASTHENOPIA [None]
  - LACRIMATION INCREASED [None]
  - VISION BLURRED [None]
